FAERS Safety Report 17140483 (Version 1)
Quarter: 2019Q4

REPORT INFORMATION
  Report Type: Spontaneous
  Country: US (occurrence: US)
  Receive Date: 20191211
  Receipt Date: 20191211
  Transmission Date: 20200122
  Serious: Yes (Hospitalization)
  Sender: FDA-Public Use
  Company Number: US-VERTEX PHARMACEUTICALS-2019-012570

PATIENT
  Sex: Male

DRUGS (34)
  1. ERGOCALCIFEROL. [Concomitant]
     Active Substance: ERGOCALCIFEROL
  2. COLISTIMETHATE [COLISTIMETHATE SODIUM] [Concomitant]
     Active Substance: COLISTIMETHATE SODIUM
  3. VITAMIN A [RETINOL] [Concomitant]
     Active Substance: RETINOL
  4. KYPROLIS [Concomitant]
     Active Substance: CARFILZOMIB
  5. MEROPENEM. [Concomitant]
     Active Substance: MEROPENEM
  6. VORICONAZOLE. [Concomitant]
     Active Substance: VORICONAZOLE
  7. PREDNISONE. [Concomitant]
     Active Substance: PREDNISONE
  8. REMERON [Concomitant]
     Active Substance: MIRTAZAPINE
  9. LIDOCAINE. [Concomitant]
     Active Substance: LIDOCAINE
  10. OXYCODONE [Concomitant]
     Active Substance: OXYCODONE
  11. KITABIS PAK [Concomitant]
     Active Substance: TOBRAMYCIN
  12. FLOVENT [Concomitant]
     Active Substance: FLUTICASONE PROPIONATE
  13. ALBUTEROL [SALBUTAMOL] [Concomitant]
     Active Substance: ALBUTEROL
  14. FEROSUL [Concomitant]
     Active Substance: FERROUS SULFATE
  15. GLUCAGON EMERGENCY KIT [Concomitant]
     Active Substance: GLUCAGON
  16. MYCOPHENOLATE MOFETIL. [Concomitant]
     Active Substance: MYCOPHENOLATE MOFETIL
  17. URSODIOL. [Concomitant]
     Active Substance: URSODIOL
  18. LOVENOX [LEVOFLOXACIN] [Concomitant]
     Active Substance: LEVOFLOXACIN
  19. BENADRYL [Concomitant]
     Active Substance: DIPHENHYDRAMINE HYDROCHLORIDE
  20. PROTONIX [OMEPRAZOLE] [Concomitant]
     Active Substance: OMEPRAZOLE
  21. TACROLIMUS. [Concomitant]
     Active Substance: TACROLIMUS
  22. MIRALAX [Concomitant]
     Active Substance: POLYETHYLENE GLYCOL 3350
  23. PEPCID [Concomitant]
     Active Substance: FAMOTIDINE
  24. CREON [Concomitant]
     Active Substance: PANCRELIPASE AMYLASE\PANCRELIPASE LIPASE\PANCRELIPASE PROTEASE
  25. ACYCLOVIR [ACICLOVIR] [Concomitant]
     Active Substance: ACYCLOVIR
  26. LASIX [Concomitant]
     Active Substance: FUROSEMIDE
  27. BACTRIM [Concomitant]
     Active Substance: SULFAMETHOXAZOLE\TRIMETHOPRIM
  28. SYMDEKO [Suspect]
     Active Substance: IVACAFTOR\TEZACAFTOR
     Indication: CYSTIC FIBROSIS
     Dosage: TEZACAFTOR 100MG/IVACAFTOR 150MG AM; IVACAFTOR 150MG PM
     Route: 048
     Dates: start: 201803
  29. VITAMIN E [Concomitant]
     Active Substance: .ALPHA.-TOCOPHEROL
  30. ALPRAZOLAM. [Concomitant]
     Active Substance: ALPRAZOLAM
  31. CALCIUM CARBONATE. [Concomitant]
     Active Substance: CALCIUM CARBONATE
  32. LANTUS [Concomitant]
     Active Substance: INSULIN GLARGINE
  33. ONDANSETRON [Concomitant]
     Active Substance: ONDANSETRON
  34. PHYTONADIONE. [Concomitant]
     Active Substance: PHYTONADIONE

REACTIONS (1)
  - Hospitalisation [Not Recovered/Not Resolved]

NARRATIVE: CASE EVENT DATE: 2019
